FAERS Safety Report 6974532-6 (Version None)
Quarter: 2010Q3

REPORT INFORMATION
  Report Type: 
  Country: None (occurrence: None)
  Receive Date: 20100909
  Receipt Date: 20100909
  Transmission Date: 20110219
  Serious: No
  Sender: FDA-Public Use
  Company Number: None

PATIENT
  Age: 84 Year
  Sex: Male
  Weight: 65 kg

DRUGS (4)
  1. QUETIAPINE [Suspect]
     Indication: AGGRESSION
     Dosage: 12.5 MG OTHER PO
     Route: 048
     Dates: start: 20100505, end: 20100513
  2. QUETIAPINE [Suspect]
     Indication: AGITATION
     Dosage: 12.5 MG OTHER PO
     Route: 048
     Dates: start: 20100505, end: 20100513
  3. QUETIAPINE [Suspect]
     Indication: COGNITIVE DISORDER
     Dosage: 12.5 MG OTHER PO
     Route: 048
     Dates: start: 20100505, end: 20100513
  4. QUETIAPINE [Suspect]
     Indication: SLEEP DISORDER
     Dosage: 12.5 MG OTHER PO
     Route: 048
     Dates: start: 20100505, end: 20100513

REACTIONS (6)
  - AGGRESSION [None]
  - CONVULSION [None]
  - ERYTHEMA [None]
  - HYPOVENTILATION [None]
  - INSOMNIA [None]
  - POSTURE ABNORMAL [None]
